FAERS Safety Report 6603484-3 (Version None)
Quarter: 2010Q1

REPORT INFORMATION
  Report Type: 
  Country: None (occurrence: None)
  Receive Date: 20100226
  Receipt Date: 20090706
  Transmission Date: 20100710
  Serious: No
  Sender: FDA-Public Use
  Company Number: A0796734A

PATIENT
  Age: 63 Year
  Sex: Female

DRUGS (3)
  1. VALTREX [Suspect]
     Dosage: 1000MG TWICE PER DAY
     Route: 048
     Dates: start: 20090401
  2. FOSAMAX [Concomitant]
     Indication: OSTEOPOROSIS
     Dates: start: 20080601, end: 20090301
  3. ACYCLOVIR [Concomitant]
     Indication: DRUG USE FOR UNKNOWN INDICATION
     Dates: end: 20090401

REACTIONS (11)
  - ACTIVITIES OF DAILY LIVING IMPAIRED [None]
  - ASTHENIA [None]
  - CHEST PAIN [None]
  - DRUG ADMINISTRATION ERROR [None]
  - DYSPEPSIA [None]
  - HEADACHE [None]
  - MALAISE [None]
  - NAUSEA [None]
  - TINNITUS [None]
  - TONGUE ERUPTION [None]
  - TREATMENT NONCOMPLIANCE [None]
